FAERS Safety Report 5185593-1 (Version None)
Quarter: 2006Q4

REPORT INFORMATION
  Report Type: 
  Country: None (occurrence: None)
  Receive Date: 20061220
  Receipt Date: 20060814
  Transmission Date: 20070319
  Serious: No
  Sender: FDA-Public Use
  Company Number: US-GLAXOSMITHKLINE-A0616436A

PATIENT
  Age: 61 Year
  Sex: Female

DRUGS (14)
  1. EQUATE NTS 21MG [Suspect]
     Dosage: 21MG PER DAY
     Route: 062
     Dates: start: 20060812
  2. LEXAPRO [Concomitant]
  3. NEURONTIN [Concomitant]
  4. KLONOPIN [Concomitant]
  5. HUMULIN 70/30 [Concomitant]
  6. LASIX [Concomitant]
  7. K-DUR 10 [Concomitant]
  8. LIPITOR [Concomitant]
  9. REGLAN [Concomitant]
  10. PREVACID [Concomitant]
  11. VALIUM [Concomitant]
  12. MULTI-VITAMIN [Concomitant]
  13. ASPIRIN [Concomitant]
  14. VITAMIN E [Concomitant]

REACTIONS (3)
  - BLOOD GLUCOSE INCREASED [None]
  - DYSPEPSIA [None]
  - INTENTIONAL DRUG MISUSE [None]
